FAERS Safety Report 19755127 (Version 2)
Quarter: 2021Q3

REPORT INFORMATION
  Report Type: Spontaneous
  Country: AR (occurrence: AR)
  Receive Date: 20210827
  Receipt Date: 20210828
  Transmission Date: 20211014
  Serious: Yes (Other)
  Sender: FDA-Public Use
  Company Number: AR-ABBVIE-21K-007-4057836-00

PATIENT
  Age: 73 Year

DRUGS (1)
  1. UPADACITINIB [Suspect]
     Active Substance: UPADACITINIB
     Indication: RHEUMATOID ARTHRITIS
     Route: 048
     Dates: start: 20201124, end: 202106

REACTIONS (2)
  - Atrial fibrillation [Recovered/Resolved]
  - Acute pulmonary oedema [Recovered/Resolved]

NARRATIVE: CASE EVENT DATE: 20210608
